FAERS Safety Report 6638386-X (Version None)
Quarter: 2010Q1

REPORT INFORMATION
  Report Type: 
  Country: None (occurrence: None)
  Receive Date: 20100317
  Receipt Date: 20100308
  Transmission Date: 20100710
  Serious: Yes (Hospitalization)
  Sender: FDA-Public Use
  Company Number: B0631022A

PATIENT
  Sex: Female

DRUGS (1)
  1. SERETIDE [Suspect]
     Indication: ASTHMA
     Dosage: 500MG PER DAY
     Route: 055
     Dates: start: 20081015, end: 20100124

REACTIONS (9)
  - ABDOMINAL PAIN UPPER [None]
  - BLOOD IRON DECREASED [None]
  - C-REACTIVE PROTEIN INCREASED [None]
  - GASTROINTESTINAL CANDIDIASIS [None]
  - LYMPHOCYTE COUNT DECREASED [None]
  - NEUTROPHIL COUNT INCREASED [None]
  - NEUTROPHIL PERCENTAGE INCREASED [None]
  - PYREXIA [None]
  - WHITE BLOOD CELL COUNT INCREASED [None]
